FAERS Safety Report 16996951 (Version 2)
Quarter: 2020Q1

REPORT INFORMATION
  Report Type: Spontaneous
  Country: US (occurrence: US)
  Receive Date: 20191106
  Receipt Date: 20200224
  Transmission Date: 20200409
  Serious: No
  Sender: FDA-Public Use
  Company Number: US-TEVA-2019-US-1133304

PATIENT
  Age: 51 Year
  Sex: Male
  Weight: 73 kg

DRUGS (3)
  1. AJOVY [Suspect]
     Active Substance: FREMANEZUMAB-VFRM
     Indication: MIGRAINE
     Dosage: MONTHLY
     Route: 065
     Dates: start: 2019
  2. SUMATRIPTAN. [Concomitant]
     Active Substance: SUMATRIPTAN
  3. AJOVY [Suspect]
     Active Substance: FREMANEZUMAB-VFRM
     Indication: PHOTOPHOBIA
     Dosage: QUARTERLY DOSING
     Route: 065
     Dates: start: 201911

REACTIONS (1)
  - Abdominal pain upper [Not Recovered/Not Resolved]

NARRATIVE: CASE EVENT DATE: 201910
